FAERS Safety Report 10223485 (Version 1)
Quarter: 2014Q2

REPORT INFORMATION
  Report Type: Spontaneous
  Country: US (occurrence: US)
  Receive Date: 20140609
  Receipt Date: 20140609
  Transmission Date: 20141212
  Serious: No
  Sender: FDA-Public Use
  Company Number: US-BIOGENIDEC-2014BI049288

PATIENT
  Age: 47 Year
  Sex: Female

DRUGS (4)
  1. TECFIDERA [Suspect]
     Indication: MULTIPLE SCLEROSIS
     Route: 048
     Dates: start: 20140407
  2. BACLOFEN [Concomitant]
  3. HYDROCODONE-ACETAMINOPHEN [Concomitant]
  4. GABAPENTIN [Concomitant]

REACTIONS (1)
  - Shoulder operation [Unknown]
